FAERS Safety Report 16693099 (Version 1)
Quarter: 2019Q3

REPORT INFORMATION
  Report Type: Spontaneous
  Country: US (occurrence: US)
  Receive Date: 20190625
  Receipt Date: 20190625
  Transmission Date: 20191004
  Serious: Yes (Hospitalization)
  Sender: FDA-Public Use
  Company Number: None

PATIENT
  Sex: Female

DRUGS (1)
  1. HUMIRA [Suspect]
     Active Substance: ADALIMUMAB
     Dosage: ?          OTHER FREQUENCY:EVERY2WKSONCE ;?
     Route: 058
     Dates: start: 20190301

REACTIONS (4)
  - Foot operation [None]
  - Pain [None]
  - Headache [None]
  - Product dose omission [None]
